FAERS Safety Report 7454279-2 (Version None)
Quarter: 2011Q2

REPORT INFORMATION
  Report Type: 
  Country: None (occurrence: None)
  Receive Date: 20110503
  Receipt Date: 20110425
  Transmission Date: 20111010
  Serious: Yes (Hospitalization)
  Sender: FDA-Public Use
  Company Number: US-US-EMD SERONO, INC.-7001576

PATIENT
  Sex: Female
  Weight: 93 kg

DRUGS (5)
  1. REBIF [Suspect]
     Indication: MULTIPLE SCLEROSIS
     Route: 058
     Dates: start: 20070827, end: 20100430
  2. VITAMINS [Concomitant]
  3. LOTREL [Concomitant]
     Indication: HYPERTENSION
  4. ALENDRONATE SODIUM [Concomitant]
     Indication: OSTEOPOROSIS
  5. REBIF [Suspect]
     Route: 058
     Dates: start: 20101102

REACTIONS (4)
  - MULTIPLE SCLEROSIS RELAPSE [None]
  - BLOOD CHOLESTEROL INCREASED [None]
  - OSTEONECROSIS [None]
  - INJECTION SITE PAIN [None]
